FAERS Safety Report 7128896-3 (Version None)
Quarter: 2010Q4

REPORT INFORMATION
  Report Type: 
  Country: None (occurrence: None)
  Receive Date: 20101130
  Receipt Date: 20101117
  Transmission Date: 20110411
  Serious: Yes (Death, Hospitalization)
  Sender: FDA-Public Use
  Company Number: A0879556A

PATIENT
  Age: 55 Year
  Sex: Male
  Weight: 109.1 kg

DRUGS (12)
  1. AVANDIA [Suspect]
     Dosage: 8MG PER DAY
     Route: 048
     Dates: end: 20020209
  2. COUMADIN [Concomitant]
  3. INSULIN [Concomitant]
  4. AMARYL [Concomitant]
  5. PREVACID [Concomitant]
  6. PAXIL [Concomitant]
  7. ZOCOR [Concomitant]
  8. ZANTAC [Concomitant]
  9. AMIODARONE HCL [Concomitant]
  10. CELEXA [Concomitant]
  11. WELLBUTRIN [Concomitant]
  12. ACCUPRIL [Concomitant]

REACTIONS (6)
  - CARDIAC DISORDER [None]
  - CARDIAC FAILURE CONGESTIVE [None]
  - CARDIO-RESPIRATORY ARREST [None]
  - CARDIOMYOPATHY [None]
  - RENAL FAILURE [None]
  - RENAL INJURY [None]
